FAERS Safety Report 9145220 (Version 3)
Quarter: 2013Q4

REPORT INFORMATION
  Report Type: Spontaneous
  Country: US (occurrence: US)
  Receive Date: 20130307
  Receipt Date: 20131011
  Transmission Date: 20140711
  Serious: Yes (Death, Life-Threatening, Hospitalization, Other)
  Sender: FDA-Public Use
  Company Number: US-009507513-1303USA001997

PATIENT
  Age: 65 Year
  Sex: Female
  Weight: 76.19 kg

DRUGS (24)
  1. TEMODAR [Suspect]
     Indication: NEOPLASM MALIGNANT
     Dosage: 2 CAPSULES OF THE TEMODAR 140 MG AND 1 CAPSULE OF THE TEMODAR 20 MG DAILY, 5 DAYS OF EACH MONTH
     Route: 048
     Dates: start: 201206, end: 201210
  2. TEMODAR [Suspect]
     Dosage: 2 CAPSULES OF THE TEMODAR 140 MG AND 1 CAPSULE OF THE TEMODAR 20 MG DAILY, 5 DAYS OF EACH MONTH
     Route: 048
     Dates: start: 2012, end: 2012
  3. ATORVASTATIN [Concomitant]
     Dosage: TAKE 1 TABLET (10MG) BY ORAL ROUTE ONCE DAILY
     Route: 048
  4. CARVEDILOL [Concomitant]
     Dosage: TAKE 1 TABLET (12.5MG) BY ORAL ROUTE 2 TIMES PER DAY WITH FOOD
     Route: 048
  5. CIPRO [Concomitant]
     Dosage: TAKE 1 TABLET (500MG) BY ORAL ROUTE EVERY 12 HOURS FOR 7 DAYS
     Route: 048
     Dates: start: 20121004, end: 20121011
  6. CITALOPRAM [Concomitant]
     Dosage: TAKE 1 TABLET (40MG) BY ORAL ROUTE PMCE DAILY
     Route: 048
  7. DEXAMETHASONE [Concomitant]
     Dosage: TAKE 1 TABLET BY ORAL ROUTE 4 TIMES A DAY FOR 30 DAYS
     Route: 048
     Dates: start: 20121022, end: 201211
  8. FLAGYL [Concomitant]
     Dosage: TAKE 1 TABLET (500) BY ORAL ROUTE EVERY 6 HOURS FOR 7 DAYS
     Dates: start: 20121015
  9. GLIPIZIDE [Concomitant]
     Dosage: TAKE 1 TABLET (5MG) BY ORAL ROUTE 2 TIMES PER DAYS BEFORE MEALS
     Route: 048
  10. LEVETIRACETAM [Concomitant]
     Dosage: TAKE 1 TABLET (500MG) BY ORAL ROUTE 2 TIMES PER DAY
     Route: 048
  11. LEVOTHYROXINE SODIUM [Concomitant]
     Dosage: TAKE 1 TABLET (88 MCG) BY ORAL ROUTE ONCE DAILY
     Route: 048
  12. LOMOTIL (ATROPINE SULFATE (+) DIPHENOXYLATE HYDROCHLORIDE) [Concomitant]
     Dosage: TAKE 2 TABLETS (5 MG) BY ORAL ROUTE ONCE DAILY AS NEEDED
     Route: 048
     Dates: start: 20121001
  13. LOVENOX [Concomitant]
     Dosage: TAKE 1 SYRINGE (60MG/0.6ML) BY SUBCUTANEOUS ROUTE TWICE A DAY
     Route: 058
     Dates: start: 20120507
  14. MEGACE [Concomitant]
     Dosage: TAKE 20 ML (400MG/10ML (40MG/ML)) BY ORAL ROUTE ONCE A DAY FOR 30 DAYS
     Route: 048
     Dates: start: 20120608
  15. METRONIDAZOLE [Concomitant]
     Dosage: TAKE 2 TABLETS (500MG) BY ORAL ROUTE EVERY 6 HOURS FOR 7 DAYS
     Route: 048
     Dates: start: 20121003
  16. METFORMIN [Concomitant]
     Dosage: TAKE 1 TABLET (500MG) BY ORAL ROUTE 2 TIMES PER DAY WITH MORNING AND EVENING MEALS
     Route: 048
  17. MIRTAZAPINE [Concomitant]
     Dosage: TAKE 1 TABLET (15 MG) BY ORAL ROUTE ONCE DAILY BEFORE BEDTIME
     Route: 048
  18. OMEPRAZOLE [Concomitant]
     Dosage: TAKE 1 CAPSULE (40MG) BY ORAL ROUTE ONCE DAILY BEFORE A MEAL
     Route: 048
  19. QUESTRAN [Concomitant]
     Dosage: TAKE 1 PACKET (4G) BY ORAL ROUTE EVERY 6 HOURS FOR 30 DAYS
     Dates: start: 20121015
  20. TESSALON [Concomitant]
     Dosage: TAKE 1 CAPSULE (100 MG) BY ORAL ROUTE ONCE A DAY AS NEEDED
     Route: 048
     Dates: start: 20120608
  21. VANCOMYCIN [Concomitant]
     Dosage: TAKE 1 CAPSULE (125MG) BY ORAL ROUTE EVERY 6 HOURS FOR 7 DAYS
     Route: 048
     Dates: start: 20121015, end: 20121022
  22. ZOFRAN [Concomitant]
     Dosage: TAKE 1-2 TABLET (4MG) BY ORAL ROUTE EVERY SIX HOURS AS NEEDED
     Dates: start: 20120608
  23. DIFLUCAN [Concomitant]
     Dosage: TAKE 1 TABLET (100MG) BY ORAL ROUTE ONCE A DAY
     Route: 048
     Dates: start: 20120430
  24. HYDROCODONE [Concomitant]
     Dosage: TAKE 1 TEASPOON (5-1.5MG/5ML) BY ORAL ROUTE EVERY SIX HOURS AS NEEDED
     Route: 048
     Dates: start: 20120522

REACTIONS (14)
  - Glioblastoma multiforme [Fatal]
  - Convulsion [Unknown]
  - Endotracheal intubation [Unknown]
  - Embolism [Unknown]
  - Pancytopenia [Unknown]
  - Appendicitis [Unknown]
  - Diverticulitis [Unknown]
  - Clostridium difficile colitis [Unknown]
  - Mental status changes [Unknown]
  - Condition aggravated [Unknown]
  - Large intestine perforation [Unknown]
  - Sepsis syndrome [Unknown]
  - Renal impairment [Unknown]
  - Supportive care [Unknown]
